FAERS Safety Report 8598684-X (Version None)
Quarter: 2012Q3

REPORT INFORMATION
  Report Type: 
  Country: None (occurrence: None)
  Receive Date: 20120816
  Receipt Date: 19880914
  Transmission Date: 20120928
  Serious: Yes (Hospitalization)
  Sender: FDA-Public Use
  Company Number: US-ROCHE-1100648

PATIENT
  Age: 52 Year
  Sex: Male

DRUGS (1)
  1. ACTIVASE [Suspect]
     Indication: ACUTE MYOCARDIAL INFARCTION

REACTIONS (5)
  - BLOOD CREATINE PHOSPHOKINASE INCREASED [None]
  - VENTRICULAR EXTRASYSTOLES [None]
  - BRADYCARDIA [None]
  - VOMITING [None]
  - SUPRAVENTRICULAR TACHYCARDIA [None]
